FAERS Safety Report 5085921-1 (Version None)
Quarter: 2006Q3

REPORT INFORMATION
  Report Type: 
  Country: None (occurrence: None)
  Receive Date: 20060817
  Receipt Date: 20060804
  Transmission Date: 20061208
  Serious: Yes (Other)
  Sender: FDA-Public Use
  Company Number: 2006096409

PATIENT
  Age: 75 Year
  Sex: Female

DRUGS (5)
  1. CARDENALIN               (DOXAZOSIN) [Suspect]
     Indication: DRUG USE FOR UNKNOWN INDICATION
     Dosage: 6 MG, ORAL
     Route: 048
  2. BLOPRESS            (CANDESARTAN CILEXETIL) [Concomitant]
  3. DEPAS (ETIZOLAM) [Concomitant]
  4. CELTECT (OXATOMIDE) [Concomitant]
  5. PLETAL [Concomitant]

REACTIONS (1)
  - HEARING IMPAIRED [None]
